FAERS Safety Report 15875969 (Version 1)
Quarter: 2019Q1

REPORT INFORMATION
  Report Type: Spontaneous
  Country: BR (occurrence: BR)
  Receive Date: 20190126
  Receipt Date: 20190126
  Transmission Date: 20190417
  Serious: Yes (Other)
  Sender: FDA-Public Use
  Company Number: PHHY2019BR015967

PATIENT
  Age: 58 Year
  Sex: Male

DRUGS (9)
  1. CLOFAZIMINE [Suspect]
     Active Substance: CLOFAZIMINE
     Indication: GRANULOMATOUS LIVER DISEASE
     Dosage: 50 MG, QD
     Route: 065
  2. RIFAMPICIN [Suspect]
     Active Substance: RIFAMPIN
     Indication: LEPROMATOUS LEPROSY
     Dosage: 600 MG, QMO
     Route: 065
  3. IBUPROFEN. [Concomitant]
     Active Substance: IBUPROFEN
     Indication: ARTHRITIS
     Route: 065
  4. DAPSONE. [Suspect]
     Active Substance: DAPSONE
     Indication: GRANULOMATOUS LIVER DISEASE
  5. OFLOXACIN. [Suspect]
     Active Substance: OFLOXACIN
     Indication: GRANULOMATOUS LIVER DISEASE
  6. DAPSONE. [Suspect]
     Active Substance: DAPSONE
     Indication: LEPROMATOUS LEPROSY
     Dosage: 100 MG, QD
     Route: 065
  7. OFLOXACIN. [Suspect]
     Active Substance: OFLOXACIN
     Indication: LEPROMATOUS LEPROSY
     Dosage: 400 MG, QD
     Route: 065
  8. CLOFAZIMINE [Suspect]
     Active Substance: CLOFAZIMINE
     Indication: LEPROMATOUS LEPROSY
     Dosage: 300 MG, QMO
     Route: 065
  9. RIFAMPICIN [Suspect]
     Active Substance: RIFAMPIN
     Indication: GRANULOMATOUS LIVER DISEASE

REACTIONS (3)
  - Erythema [Recovered/Resolved]
  - Type 2 lepra reaction [Recovered/Resolved]
  - Haemolytic anaemia [Unknown]
